FAERS Safety Report 10627769 (Version 1)
Quarter: 2014Q4

REPORT INFORMATION
  Report Type: Spontaneous
  Country: US (occurrence: US)
  Receive Date: 20141205
  Receipt Date: 20141205
  Transmission Date: 20150529
  Serious: No
  Sender: FDA-Public Use
  Company Number: US-BIOGENIDEC-2014BI125942

PATIENT
  Sex: Male

DRUGS (2)
  1. TYSABRI [Suspect]
     Active Substance: NATALIZUMAB
     Indication: MULTIPLE SCLEROSIS
     Route: 042
     Dates: start: 20140130
  2. NOVACAINE [Concomitant]
     Active Substance: PROCAINE
     Indication: DENTAL CARE

REACTIONS (4)
  - Dental care [Unknown]
  - General symptom [Not Recovered/Not Resolved]
  - Anorgasmia [Not Recovered/Not Resolved]
  - Drug tolerance increased [Unknown]

NARRATIVE: CASE EVENT DATE: 2014
